FAERS Safety Report 4477459-7 (Version None)
Quarter: 2004Q4

REPORT INFORMATION
  Report Type: 
  Country: None (occurrence: None)
  Receive Date: 20041005
  Receipt Date: 20040929
  Transmission Date: 20050328
  Serious: Yes (Other)
  Sender: FDA-Public Use
  Company Number: 200410204BBE

PATIENT
  Age: 53 Year
  Sex: Male

DRUGS (1)
  1. IMMUNE GLOBULIN INTRAVENOUS (HUMAN) [Suspect]
     Indication: MILLER FISHER SYNDROME
     Dosage: 400 MG/KG, INTRAVENOUS
     Route: 042

REACTIONS (1)
  - LEUKOENCEPHALOPATHY [None]
